FAERS Safety Report 15798625 (Version 1)
Quarter: 2019Q1

REPORT INFORMATION
  Report Type: Not Available
  Country: GB (occurrence: GB)
  Receive Date: 20190108
  Receipt Date: 20190108
  Transmission Date: 20190417
  Serious: Yes (Other)
  Sender: FDA-Public Use
  Company Number: GB-SYNTHON BV-NL01PV19_48013

PATIENT
  Age: 67 Year
  Sex: Male
  Weight: 117.3 kg

DRUGS (8)
  1. FENOFIBRATE MICRONISED [Concomitant]
     Active Substance: FENOFIBRATE
     Dosage: UNK
  2. INDAPAMIDE. [Concomitant]
     Active Substance: INDAPAMIDE
     Dosage: UNK
  3. ADCAL-D3 [Concomitant]
     Active Substance: CALCIUM CARBONATE\CHOLECALCIFEROL
     Dosage: UNK
  4. IRBESARTAN. [Concomitant]
     Active Substance: IRBESARTAN
     Dosage: UNK
  5. PANTOPRAZOLE [Concomitant]
     Active Substance: PANTOPRAZOLE
     Dosage: UNK
  6. TAMSULOSIN [Suspect]
     Active Substance: TAMSULOSIN
     Indication: MICTURITION URGENCY
     Dosage: 400 ?G, QD, CAPSULE (HARD)
     Route: 048
     Dates: start: 20181010, end: 20181028
  7. ALLOPURINOL. [Concomitant]
     Active Substance: ALLOPURINOL
     Dosage: UNK
  8. CLOPIDOGREL [Concomitant]
     Active Substance: CLOPIDOGREL BISULFATE
     Indication: ANTICOAGULANT THERAPY
     Dosage: UNK

REACTIONS (4)
  - Erectile dysfunction [Not Recovered/Not Resolved]
  - Loss of libido [Not Recovered/Not Resolved]
  - Drug ineffective [Not Recovered/Not Resolved]
  - Ejaculation disorder [Not Recovered/Not Resolved]
